FAERS Safety Report 15692104 (Version 1)
Quarter: 2018Q4

REPORT INFORMATION
  Report Type: Report from Study
  Country: US (occurrence: US)
  Receive Date: 20181205
  Receipt Date: 20181205
  Transmission Date: 20190205
  Serious: Yes (Hospitalization)
  Sender: FDA-Public Use
  Company Number: US-GILEAD-2018-0370513

PATIENT
  Age: 53 Year
  Sex: Female

DRUGS (3)
  1. AMBRISENTAN [Suspect]
     Active Substance: AMBRISENTAN
     Indication: PRODUCT USED FOR UNKNOWN INDICATION
     Dosage: 10 MG, QD
     Route: 065
     Dates: start: 20150716
  2. UPTRAVI [Concomitant]
     Active Substance: SELEXIPAG
  3. COUMADIN [Concomitant]
     Active Substance: WARFARIN SODIUM

REACTIONS (7)
  - Middle insomnia [Unknown]
  - Fatigue [Unknown]
  - Malaise [Unknown]
  - Rectal prolapse [Unknown]
  - Dizziness [Unknown]
  - Vomiting [Unknown]
  - Somnolence [Unknown]

NARRATIVE: CASE EVENT DATE: 201810
